FAERS Safety Report 17536942 (Version 1)
Quarter: 2020Q1

REPORT INFORMATION
  Report Type: Spontaneous
  Country: ES (occurrence: ES)
  Receive Date: 20200313
  Receipt Date: 20200313
  Transmission Date: 20200409
  Serious: Yes (Life-Threatening, Hospitalization)
  Sender: FDA-Public Use
  Company Number: NVSC2020ES071091

PATIENT
  Age: 69 Year
  Sex: Male

DRUGS (1)
  1. OMEPRAZOLE. [Suspect]
     Active Substance: OMEPRAZOLE
     Indication: GASTRITIS HAEMORRHAGIC
     Dosage: 20 MG, UNKNOWN
     Route: 065

REACTIONS (3)
  - Aortoenteric fistula [Recovered/Resolved]
  - Aortic aneurysm [Recovered/Resolved]
  - Upper gastrointestinal haemorrhage [Recovered/Resolved]
